FAERS Safety Report 15813471 (Version 1)
Quarter: 2019Q1

REPORT INFORMATION
  Report Type: Spontaneous
  Country: US (occurrence: US)
  Receive Date: 20190111
  Receipt Date: 20190111
  Transmission Date: 20190417
  Serious: Yes (Disabling)
  Sender: FDA-Public Use
  Company Number: None

PATIENT
  Age: 77 Year
  Sex: Female
  Weight: 63.45 kg

DRUGS (18)
  1. SPIRIVA RESPIMAT [Concomitant]
     Active Substance: TIOTROPIUM BROMIDE
  2. PROAIR HFA [Concomitant]
     Active Substance: ALBUTEROL SULFATE
  3. MUCINEX [Concomitant]
     Active Substance: GUAIFENESIN
  4. VIT. D [Concomitant]
  5. L-GLUTAMINE [Concomitant]
  6. PREDNISONE. [Concomitant]
     Active Substance: PREDNISONE
  7. DILTIAZEM. [Concomitant]
     Active Substance: DILTIAZEM
  8. SENEXON-S [Concomitant]
     Active Substance: DOCUSATE SODIUM\SENNOSIDES A AND B
  9. RHODIOLA [Concomitant]
     Active Substance: HERBALS
  10. GAS-X [Concomitant]
     Active Substance: DIMETHICONE
  11. LEVOFLOXACIN 750 MG TABLET SUBST FOR LEVAQUIN [Suspect]
     Active Substance: LEVOFLOXACIN
     Indication: LUNG INFECTION
     Dosage: ?          QUANTITY:1 TABLET(S);?
     Route: 048
     Dates: start: 20181204, end: 20181207
  12. VIT.B COMPLEX + C [Concomitant]
  13. VIT. K [Concomitant]
  14. SYMBICORT [Concomitant]
     Active Substance: BUDESONIDE\FORMOTEROL FUMARATE DIHYDRATE
  15. MCT OIL [Concomitant]
  16. IBUPROFEN. [Concomitant]
     Active Substance: IBUPROFEN
  17. SALINE [Concomitant]
     Active Substance: SODIUM CHLORIDE
  18. FLONASE [Concomitant]
     Active Substance: FLUTICASONE PROPIONATE

REACTIONS (1)
  - Tendon discomfort [None]

NARRATIVE: CASE EVENT DATE: 20181208
